FAERS Safety Report 5914064-7 (Version None)
Quarter: 2008Q4

REPORT INFORMATION
  Report Type: 
  Country: None (occurrence: None)
  Receive Date: 20081009
  Receipt Date: 20081002
  Transmission Date: 20090506
  Serious: Yes (Other)
  Sender: FDA-Public Use
  Company Number: GB-ROCHE-590068

PATIENT
  Sex: Female

DRUGS (2)
  1. CLONAZEPAM [Suspect]
     Indication: DRUG USE FOR UNKNOWN INDICATION
     Dosage: TAKEN FOR OVER A YEAR
     Route: 065
     Dates: start: 20070101
  2. CETIRIZINE HCL [Concomitant]

REACTIONS (1)
  - HYPERTHYROIDISM [None]
